FAERS Safety Report 4653359-4 (Version None)
Quarter: 2005Q2

REPORT INFORMATION
  Report Type: 
  Country: None (occurrence: None)
  Receive Date: 20050503
  Receipt Date: 20050422
  Transmission Date: 20051028
  Serious: Yes (Hospitalization)
  Sender: FDA-Public Use
  Company Number: 10920

PATIENT
  Age: 62 Year
  Sex: Male

DRUGS (10)
  1. FLUOROURACIL [Suspect]
     Indication: COLON CANCER STAGE III
     Dosage: SEE IMAGE
     Route: 042
     Dates: start: 20050405
  2. FLUOROURACIL [Suspect]
     Indication: COLON CANCER STAGE III
     Dosage: SEE IMAGE
     Route: 042
     Dates: start: 20050405
  3. LEUCOVORIN CALCIUM [Suspect]
     Indication: COLON CANCER STAGE III
     Dosage: 400 MG/M2 PER_CYCLE
     Route: 042
     Dates: start: 20050405
  4. OXALIPLATIN [Suspect]
     Indication: COLON CANCER STAGE III
     Dosage: 85 MG/M2 PER_CYCLE
     Route: 042
     Dates: start: 20050405
  5. RAMIPRIL [Concomitant]
  6. ACETYL SALICYLIC ACID USP BAT [Concomitant]
  7. HYDROCHLOROTHIAZIDE [Concomitant]
  8. ATORVASTATIN CALCIUM [Concomitant]
  9. METOPROLOL TARTRATE [Concomitant]
  10. CLOPIDOGREL BISULFATE [Concomitant]

REACTIONS (4)
  - BLOOD CREATININE INCREASED [None]
  - HAEMOGLOBIN DECREASED [None]
  - MYOCARDIAL ISCHAEMIA [None]
  - SERUM FERRITIN DECREASED [None]
